FAERS Safety Report 11642409 (Version 5)
Quarter: 2016Q3

REPORT INFORMATION
  Report Type: Spontaneous
  Country: PK (occurrence: PK)
  Receive Date: 20151019
  Receipt Date: 20160901
  Transmission Date: 20161109
  Serious: Yes (Death, Hospitalization, Other)
  Sender: FDA-Public Use
  Company Number: PK-GILEAD-2015-0176693

PATIENT
  Age: 65 Year
  Sex: Female

DRUGS (12)
  1. TIENAM [Concomitant]
     Active Substance: CILASTATIN SODIUM\IMIPENEM
     Indication: PRODUCT USED FOR UNKNOWN INDICATION
  2. ZURIG [Concomitant]
     Indication: PRODUCT USED FOR UNKNOWN INDICATION
  3. LEXOBRON [Concomitant]
     Indication: PRODUCT USED FOR UNKNOWN INDICATION
  4. CARVEDILOL. [Concomitant]
     Active Substance: CARVEDILOL
  5. FLAGYL [Concomitant]
     Active Substance: METRONIDAZOLE\METRONIDAZOLE HYDROCHLORIDE
     Indication: PRODUCT USED FOR UNKNOWN INDICATION
  6. AMINOLEBAN                         /01982601/ [Concomitant]
     Active Substance: AMINO ACIDS
     Indication: PRODUCT USED FOR UNKNOWN INDICATION
  7. SILIVERINE [Concomitant]
     Indication: PRODUCT USED FOR UNKNOWN INDICATION
  8. HUMALIN [Concomitant]
     Active Substance: INSULIN NOS
     Indication: PRODUCT USED FOR UNKNOWN INDICATION
  9. SOVALDI [Suspect]
     Active Substance: SOFOSBUVIR
     Indication: HEPATITIS C
     Dosage: 400 MG, UNK
     Route: 048
     Dates: start: 20150416, end: 20150903
  10. XOLOX                              /00816701/ [Suspect]
     Active Substance: RIBAVIRIN
     Indication: HEPATITIS C
     Dosage: 1200 MG, QD
     Route: 048
     Dates: start: 20150416, end: 20150830
  11. RISEK                              /00661201/ [Concomitant]
     Indication: PRODUCT USED FOR UNKNOWN INDICATION
  12. EPOKINE [Concomitant]
     Indication: PRODUCT USED FOR UNKNOWN INDICATION

REACTIONS (14)
  - Bradycardia [Unknown]
  - Shock haemorrhagic [Unknown]
  - Constipation [Unknown]
  - Haemoglobin decreased [Unknown]
  - Anaemia [Unknown]
  - Pyrexia [Unknown]
  - Cardiac arrest [Fatal]
  - Ascites [Unknown]
  - Altered state of consciousness [Unknown]
  - Urinary tract infection [Unknown]
  - Loss of consciousness [Fatal]
  - Blood creatinine abnormal [Unknown]
  - Hepatic encephalopathy [Unknown]
  - Hepatic cirrhosis [Unknown]

NARRATIVE: CASE EVENT DATE: 2015
